FAERS Safety Report 16398516 (Version 1)
Quarter: 2019Q2

REPORT INFORMATION
  Report Type: Report from Study
  Country: US (occurrence: US)
  Receive Date: 20190606
  Receipt Date: 20190606
  Transmission Date: 20190711
  Serious: Yes (Hospitalization)
  Sender: FDA-Public Use
  Company Number: US-BAYER-2019-109916

PATIENT
  Age: 91 Year
  Sex: Female

DRUGS (1)
  1. ADEMPAS [Suspect]
     Active Substance: RIOCIGUAT
     Indication: PULMONARY ARTERIAL HYPERTENSION
     Dosage: 0.5 MG, TID
     Route: 048
     Dates: start: 20190517, end: 20190528

REACTIONS (4)
  - Fall [None]
  - Hypotension [None]
  - Dizziness [None]
  - Contusion [None]

NARRATIVE: CASE EVENT DATE: 20190529
